FAERS Safety Report 13908529 (Version 7)
Quarter: 2018Q2

REPORT INFORMATION
  Report Type: Spontaneous
  Country: US (occurrence: US)
  Receive Date: 20170827
  Receipt Date: 20180427
  Transmission Date: 20180711
  Serious: Yes (Death, Hospitalization)
  Sender: FDA-Public Use
  Company Number: US-CELGENEUS-USA-20170804965

PATIENT
  Age: 94 Year
  Sex: Male

DRUGS (1)
  1. POMALYST [Suspect]
     Active Substance: POMALIDOMIDE
     Indication: PLASMA CELL MYELOMA
     Dosage: 4 MILLIGRAM
     Route: 048
     Dates: start: 20170405

REACTIONS (5)
  - Elderly [Fatal]
  - Dyspnoea [Unknown]
  - Renal failure [Fatal]
  - Haemorrhage urinary tract [Unknown]
  - Malaise [Unknown]

NARRATIVE: CASE EVENT DATE: 20170407
